FAERS Safety Report 25929808 (Version 1)
Quarter: 2025Q4

REPORT INFORMATION
  Report Type: Spontaneous
  Country: JP (occurrence: JP)
  Receive Date: 20251016
  Receipt Date: 20251016
  Transmission Date: 20260118
  Serious: Yes (Other)
  Sender: REGENERON
  Company Number: JP-BAYER-2025A129884

PATIENT
  Age: 63 Year
  Sex: Male

DRUGS (2)
  1. EYLEA [Suspect]
     Active Substance: AFLIBERCEPT
     Indication: Retinal vein occlusion
     Dosage: 2 MG, ONCE, SOLUTION FOR INJECTION, 40 MG/ML
     Route: 031
  2. EYLEA [Suspect]
     Active Substance: AFLIBERCEPT
     Dosage: 2 MG, ONCE, TOTAL OF 10 DOSES PRIOR TO THE EVENT, SOLUTION FOR INJECTION , 40 MG/ML
     Route: 031
     Dates: start: 202504, end: 202504

REACTIONS (2)
  - Macular oedema [Unknown]
  - Non-infectious endophthalmitis [Recovered/Resolved]

NARRATIVE: CASE EVENT DATE: 20250401
